FAERS Safety Report 20374211 (Version 1)
Quarter: 2022Q1

REPORT INFORMATION
  Report Type: Spontaneous
  Country: US (occurrence: None)
  Receive Date: 20220125
  Receipt Date: 20220125
  Transmission Date: 20220424
  Serious: Yes (Hospitalization)
  Sender: FDA-Public Use
  Company Number: None

PATIENT
  Sex: Male
  Weight: 111.6 kg

DRUGS (7)
  1. DASATINIB [Suspect]
     Active Substance: DASATINIB
  2. CYCLOPHOSPHAMIDE [Concomitant]
  3. CYTARABINE [Concomitant]
  4. DEXAMETHASONE [Concomitant]
     Active Substance: DEXAMETHASONE
  5. DOXORUBICIN HYDROCHLORIDE [Concomitant]
  6. METHOTREXATE [Concomitant]
     Active Substance: METHOTREXATE
  7. VINCRISTINE SULFATE [Concomitant]
     Active Substance: VINCRISTINE SULFATE

REACTIONS (5)
  - Atrial fibrillation [None]
  - Dehydration [None]
  - Blood pressure decreased [None]
  - Electrocardiogram T wave abnormal [None]
  - Electrocardiogram abnormal [None]

NARRATIVE: CASE EVENT DATE: 20220120
